FAERS Safety Report 24865322 (Version 7)
Quarter: 2025Q1

REPORT INFORMATION
  Report Type: Report from Study
  Country: US (occurrence: US)
  Receive Date: 20250121
  Receipt Date: 20250326
  Transmission Date: 20250409
  Serious: No
  Sender: DECIPHERA PHARMACEUTICALS
  Company Number: US-DECIPHERA PHARMACEUTICALS LLC-2025US000021

PATIENT
  Age: 85 Year
  Sex: Female

DRUGS (4)
  1. QINLOCK [Suspect]
     Active Substance: RIPRETINIB
     Indication: Gastrointestinal stromal tumour
     Dosage: 150 MILLIGRAM, QD (3 TABLETS OF 50 MG)
     Route: 048
     Dates: start: 20241121
  2. QINLOCK [Suspect]
     Active Substance: RIPRETINIB
     Dosage: 100 MILLIGRAM, QD (2 TABLETS OF 50 MG)
     Route: 048
  3. QINLOCK [Suspect]
     Active Substance: RIPRETINIB
     Dosage: 100 MILLIGRAM, QD (SKIPPED DOSE)
     Dates: start: 20250227
  4. QINLOCK [Suspect]
     Active Substance: RIPRETINIB
     Dosage: 100 MILLIGRAM, QD
     Route: 048

REACTIONS (9)
  - Epigastric discomfort [Unknown]
  - Acrochordon [Not Recovered/Not Resolved]
  - Eye pruritus [Unknown]
  - Skin papilloma [Unknown]
  - Pruritus [Unknown]
  - Alopecia [Unknown]
  - Product dose omission issue [Unknown]
  - Product tampering [Unknown]
  - Product container seal issue [Unknown]

NARRATIVE: CASE EVENT DATE: 20250227
